FAERS Safety Report 15498398 (Version 1)
Quarter: 2018Q4

REPORT INFORMATION
  Report Type: Spontaneous
  Country: US (occurrence: US)
  Receive Date: 20181015
  Receipt Date: 20181015
  Transmission Date: 20190205
  Serious: Yes (Other)
  Sender: FDA-Public Use
  Company Number: US-VEROSCIENCE-VER-2018-00010

PATIENT

DRUGS (6)
  1. BABY ASPIRIN [Suspect]
     Active Substance: ASPIRIN
  2. NORVASC [Suspect]
     Active Substance: AMLODIPINE BESYLATE
  3. CYCLOSET [Suspect]
     Active Substance: BROMOCRIPTINE MESYLATE
     Dosage: 0.8 MG MILLIGRAM(S) 4 TABS DAILY
     Route: 048
  4. XARELTO [Suspect]
     Active Substance: RIVAROXABAN
  5. LIPITOR [Suspect]
     Active Substance: ATORVASTATIN CALCIUM
  6. JANUVIA [Concomitant]
     Active Substance: SITAGLIPTIN PHOSPHATE

REACTIONS (2)
  - Haematochezia [Unknown]
  - Haemoptysis [Unknown]
